FAERS Safety Report 15093103 (Version 1)
Quarter: 2018Q2

REPORT INFORMATION
  Report Type: Report from Study
  Country: DE (occurrence: GB)
  Receive Date: 20180629
  Receipt Date: 20180629
  Transmission Date: 20180711
  Serious: No
  Sender: FDA-Public Use
  Company Number: GB-TORRENT-00016780

PATIENT
  Age: 11 Year
  Sex: Female

DRUGS (1)
  1. ARIPIPRAZOLE. [Suspect]
     Active Substance: ARIPIPRAZOLE
     Indication: HALLUCINATION, TACTILE
     Dosage: UNKNOWN
     Route: 048

REACTIONS (4)
  - Dementia Alzheimer^s type [Unknown]
  - Alanine aminotransferase increased [Unknown]
  - Product use in unapproved indication [Unknown]
  - Agitation [Unknown]
